FAERS Safety Report 16451262 (Version 1)
Quarter: 2019Q2

REPORT INFORMATION
  Report Type: Spontaneous
  Country: TW (occurrence: TW)
  Receive Date: 20190619
  Receipt Date: 20190619
  Transmission Date: 20190711
  Serious: Yes (Other)
  Sender: FDA-Public Use
  Company Number: TW-ROCHE-2340011

PATIENT
  Age: 51 Year
  Sex: Female

DRUGS (1)
  1. HERCEPTIN [Suspect]
     Active Substance: TRASTUZUMAB
     Indication: BREAST CANCER
     Dosage: 3RD CYCLE ON 12/JUNE  (TOTAL OF 3 CYCLES)
     Route: 058

REACTIONS (2)
  - Cellulitis [Unknown]
  - Rash [Not Recovered/Not Resolved]
